FAERS Safety Report 13779695 (Version 1)
Quarter: 2017Q3

REPORT INFORMATION
  Report Type: Spontaneous
  Country: FR (occurrence: FR)
  Receive Date: 20170722
  Receipt Date: 20170722
  Transmission Date: 20171127
  Serious: Yes (Hospitalization)
  Sender: FDA-Public Use
  Company Number: FR-ROCHE-1964069

PATIENT
  Age: 59 Year
  Sex: Female

DRUGS (9)
  1. TRAMADOL HYDROCHLORIDE. [Suspect]
     Active Substance: TRAMADOL HYDROCHLORIDE
     Indication: PAIN
     Route: 048
     Dates: start: 20140130, end: 20140709
  2. ZELBORAF [Suspect]
     Active Substance: VEMURAFENIB
     Indication: MALIGNANT MELANOMA
     Route: 048
     Dates: start: 20140422, end: 20140709
  3. MYDRIATICUM [Concomitant]
     Active Substance: TROPICAMIDE
     Route: 065
     Dates: start: 20140313
  4. TAFINLAR [Concomitant]
     Active Substance: DABRAFENIB MESYLATE
     Route: 065
     Dates: start: 201402, end: 201404
  5. ZOLPIDEM [Concomitant]
     Active Substance: ZOLPIDEM\ZOLPIDEM TARTRATE
  6. PARACETAMOL [Concomitant]
     Active Substance: ACETAMINOPHEN
  7. LACRYVISC [Concomitant]
     Route: 065
     Dates: start: 20140313
  8. XANAX [Concomitant]
     Active Substance: ALPRAZOLAM
     Route: 065
  9. CHIBRO CADRON [Concomitant]
     Active Substance: DEXAMETHASONE SODIUM PHOSPHATE\NEOMYCIN SULFATE
     Route: 065
     Dates: start: 20140313

REACTIONS (2)
  - Cholestasis [Recovered/Resolved]
  - Hepatocellular injury [Recovered/Resolved]

NARRATIVE: CASE EVENT DATE: 20140709
